FAERS Safety Report 18363844 (Version 1)
Quarter: 2020Q4

REPORT INFORMATION
  Report Type: Spontaneous
  Country: US (occurrence: US)
  Receive Date: 20201009
  Receipt Date: 20201009
  Transmission Date: 20210114
  Serious: Yes (Other)
  Sender: FDA-Public Use
  Company Number: US-JNJFOC-20200952888

PATIENT
  Age: 37 Year
  Sex: Male
  Weight: 70.37 kg

DRUGS (1)
  1. REMICADE [Suspect]
     Active Substance: INFLIXIMAB
     Indication: CROHN^S DISEASE
     Route: 042
     Dates: start: 202009

REACTIONS (5)
  - Blood pressure increased [Unknown]
  - Facial paralysis [Unknown]
  - Infusion related reaction [Unknown]
  - Throat tightness [Unknown]
  - Heart rate irregular [Unknown]

NARRATIVE: CASE EVENT DATE: 20200925
